FAERS Safety Report 21561639 (Version 2)
Quarter: 2022Q4

REPORT INFORMATION
  Report Type: Spontaneous
  Country: US (occurrence: US)
  Receive Date: 20221107
  Receipt Date: 20221126
  Transmission Date: 20230113
  Serious: Yes (Death, Hospitalization)
  Sender: FDA-Public Use
  Company Number: US-TEVA-2022-US-2822814

PATIENT
  Age: 36 Year
  Sex: Female

DRUGS (5)
  1. CLINDAMYCIN [Suspect]
     Active Substance: CLINDAMYCIN
     Indication: Pneumocystis jirovecii pneumonia
     Route: 065
  2. COTRIMOXAZOLE [Suspect]
     Active Substance: SULFAMETHOXAZOLE\TRIMETHOPRIM
     Indication: Pneumocystis jirovecii pneumonia
     Dosage: SULFAMETHOXAZOLE-TRIMETHOPRIM (SMX-TMP) FOR A FEW DAYS
     Route: 065
  3. TEMOZOLOMIDE [Suspect]
     Active Substance: TEMOZOLOMIDE
     Indication: Anaplastic astrocytoma
     Dosage: TEMOZOLOMIDE (TMZ) FOR THE LAST 18 MONTHS
     Route: 065
  4. PRIMAQUINE [Suspect]
     Active Substance: PRIMAQUINE
     Indication: Thrombocytopenia
     Dosage: PRIMAQUINE (EIGHT DAYS)
     Route: 065
  5. PRIMAQUINE [Suspect]
     Active Substance: PRIMAQUINE
     Route: 065

REACTIONS (5)
  - Pneumocystis jirovecii pneumonia [Fatal]
  - Septic shock [Fatal]
  - Acute respiratory failure [Fatal]
  - Pneumothorax [Fatal]
  - Drug ineffective [Fatal]
